FAERS Safety Report 10445334 (Version 4)
Quarter: 2014Q4

REPORT INFORMATION
  Report Type: Spontaneous
  Country: US (occurrence: US)
  Receive Date: 20140910
  Receipt Date: 20141224
  Transmission Date: 20150528
  Serious: Yes (Life-Threatening, Hospitalization, Other)
  Sender: FDA-Public Use
  Company Number: US-BAYER-2014-134466

PATIENT
  Age: 34 Year
  Sex: Female
  Weight: 61 kg

DRUGS (2)
  1. MIRENA [Suspect]
     Active Substance: LEVONORGESTREL
     Indication: CONTRACEPTION
     Dosage: 20 MCG/24HR, CONT
     Route: 015
     Dates: start: 20100824, end: 20120911
  2. CALCIUM CARBONATE. [Concomitant]
     Active Substance: CALCIUM CARBONATE
     Dosage: 500 MG, TID
     Dates: start: 20111028

REACTIONS (28)
  - Injury [Not Recovered/Not Resolved]
  - Device dislocation [Not Recovered/Not Resolved]
  - Nausea [None]
  - Anxiety [Not Recovered/Not Resolved]
  - Abdominal pain [Not Recovered/Not Resolved]
  - Hot flush [Not Recovered/Not Resolved]
  - Abdominal pain lower [Not Recovered/Not Resolved]
  - Panic reaction [None]
  - Fear of death [None]
  - Uterine perforation [Not Recovered/Not Resolved]
  - Anhedonia [Not Recovered/Not Resolved]
  - Drug ineffective [None]
  - General physical health deterioration [Not Recovered/Not Resolved]
  - Thrombocytopenia [Not Recovered/Not Resolved]
  - Menopausal symptoms [Not Recovered/Not Resolved]
  - Insomnia [Not Recovered/Not Resolved]
  - Foetal growth restriction [None]
  - Back pain [Not Recovered/Not Resolved]
  - Depressed mood [None]
  - Frustration [None]
  - Nervousness [None]
  - Infection [None]
  - Device difficult to use [None]
  - Anxiety [None]
  - Emotional distress [None]
  - Pregnancy with contraceptive device [None]
  - Depression [Not Recovered/Not Resolved]
  - Fatigue [Not Recovered/Not Resolved]

NARRATIVE: CASE EVENT DATE: 201110
